FAERS Safety Report 9626976 (Version 1)
Quarter: 2013Q4

REPORT INFORMATION
  Report Type: Spontaneous
  Country: GB (occurrence: GB)
  Receive Date: 20131016
  Receipt Date: 20131016
  Transmission Date: 20140711
  Serious: Yes (Hospitalization, Other)
  Sender: FDA-Public Use
  Company Number: PHHY2013GB112575

PATIENT
  Age: 36 Year
  Sex: Male

DRUGS (1)
  1. ITRACONAZOLE [Suspect]
     Route: 048

REACTIONS (1)
  - Acute psychosis [Unknown]
